FAERS Safety Report 15885987 (Version 1)
Quarter: 2019Q1

REPORT INFORMATION
  Report Type: Report from Study
  Country: CA (occurrence: CA)
  Receive Date: 20190129
  Receipt Date: 20190129
  Transmission Date: 20190417
  Serious: Yes (Other)
  Sender: FDA-Public Use
  Company Number: CA-JNJFOC-20181039501

PATIENT
  Sex: Female

DRUGS (1)
  1. IMBRUVICA [Suspect]
     Active Substance: IBRUTINIB
     Indication: CHRONIC GRAFT VERSUS HOST DISEASE
     Dosage: STRENGTH = 140 MG
     Route: 048
     Dates: start: 20171109, end: 20181011

REACTIONS (4)
  - Fatigue [Unknown]
  - Contusion [Unknown]
  - Hypertension [Unknown]
  - Uterine haemorrhage [Unknown]
